FAERS Safety Report 14674860 (Version 1)
Quarter: 2018Q1

REPORT INFORMATION
  Report Type: Spontaneous
  Country: JP (occurrence: JP)
  Receive Date: 20180323
  Receipt Date: 20180323
  Transmission Date: 20180509
  Serious: Yes (Other)
  Sender: FDA-Public Use
  Company Number: PHJP2018JP006635

PATIENT
  Sex: Female

DRUGS (1)
  1. VOLTAREN SUP [Suspect]
     Active Substance: DICLOFENAC SODIUM
     Indication: PAIN
     Dosage: 25 MG, BID (MORNING AND EVENING; SOMETIMES USED ONLY ONCE DAILY)
     Route: 054

REACTIONS (1)
  - Anaphylactic reaction [Unknown]
